FAERS Safety Report 10033139 (Version 2)
Quarter: 2014Q2

REPORT INFORMATION
  Report Type: Spontaneous
  Country: US (occurrence: US)
  Receive Date: 20140324
  Receipt Date: 20140421
  Transmission Date: 20141212
  Serious: Yes (Hospitalization)
  Sender: FDA-Public Use
  Company Number: US-GILEAD-2014-0097590

PATIENT
  Age: 12 Year
  Sex: Female

DRUGS (4)
  1. LETAIRIS [Suspect]
     Indication: PULMONARY HYPERTENSION
     Dosage: 5 MG, QD
     Route: 065
     Dates: start: 20140219
  2. LETAIRIS [Suspect]
     Indication: VENTRICULAR SEPTAL DEFECT
  3. LETAIRIS [Suspect]
     Indication: TRISOMY 21
  4. LETAIRIS [Suspect]
     Indication: PATENT DUCTUS ARTERIOSUS

REACTIONS (1)
  - Oxygen saturation decreased [Not Recovered/Not Resolved]
